FAERS Safety Report 7706221-4 (Version None)
Quarter: 2011Q3

REPORT INFORMATION
  Report Type: 
  Country: None (occurrence: None)
  Receive Date: 20110824
  Receipt Date: 20110812
  Transmission Date: 20111222
  Serious: Yes (Hospitalization)
  Sender: FDA-Public Use
  Company Number: RU-SANOFI-AVENTIS-2011SA051202

PATIENT
  Age: 53 Year
  Sex: Female
  Weight: 77 kg

DRUGS (5)
  1. BLINDED THERAPY [Suspect]
     Dates: start: 20110705, end: 20110705
  2. DOCETAXEL [Suspect]
     Indication: BREAST CANCER
     Route: 041
     Dates: start: 20100824, end: 20100824
  3. ENALAPRIL MALEATE [Concomitant]
  4. DOCETAXEL [Suspect]
     Route: 041
     Dates: start: 20110705, end: 20110705
  5. BLINDED THERAPY [Suspect]
     Indication: BREAST CANCER
     Dates: start: 20100824, end: 20100824

REACTIONS (1)
  - HYPERTENSIVE CRISIS [None]
